FAERS Safety Report 7377031-5 (Version None)
Quarter: 2011Q1

REPORT INFORMATION
  Report Type: 
  Country: None (occurrence: None)
  Receive Date: 20110328
  Receipt Date: 20110318
  Transmission Date: 20110831
  Serious: No
  Sender: FDA-Public Use
  Company Number: US-BIOGENIDEC-2011BI005062

PATIENT
  Age: 32 Year
  Sex: Female

DRUGS (1)
  1. TYSABRI [Suspect]
     Indication: MULTIPLE SCLEROSIS
     Route: 042
     Dates: start: 20110125

REACTIONS (13)
  - DIZZINESS [None]
  - PYREXIA [None]
  - LYMPHOCYTE COUNT INCREASED [None]
  - MIGRAINE [None]
  - ALOPECIA [None]
  - CHEST DISCOMFORT [None]
  - EYE PAIN [None]
  - GAIT DISTURBANCE [None]
  - CENTRAL NERVOUS SYSTEM LESION [None]
  - TRICHORRHEXIS [None]
  - INSOMNIA [None]
  - ABDOMINAL PAIN UPPER [None]
  - WEIGHT INCREASED [None]
